FAERS Safety Report 7949093-5 (Version None)
Quarter: 2011Q4

REPORT INFORMATION
  Report Type: 
  Country: None (occurrence: None)
  Receive Date: 20111130
  Receipt Date: 20110823
  Transmission Date: 20120403
  Serious: No
  Sender: FDA-Public Use
  Company Number: US-BRISTOL-MYERS SQUIBB COMPANY-15898497

PATIENT
  Age: 31 Year
  Sex: Male

DRUGS (3)
  1. GLUCOPHAGE [Suspect]
     Indication: DIABETES MELLITUS
  2. LIPITOR [Suspect]
     Indication: HYPERLIPIDAEMIA
  3. KOMBIGLYZE XR [Suspect]
     Indication: DIABETES MELLITUS
     Dosage: 1 DF = 5/1000 UNIT NOT MENTIONED ALSO 2.5/1000, 2QD UNITS NOT MENTIONED
     Route: 048
     Dates: start: 20110414

REACTIONS (1)
  - HAIR GROWTH ABNORMAL [None]
